FAERS Safety Report 21402198 (Version 1)
Quarter: 2022Q4

REPORT INFORMATION
  Report Type: Spontaneous
  Country: ES (occurrence: ES)
  Receive Date: 20221003
  Receipt Date: 20221003
  Transmission Date: 20230113
  Serious: Yes (Hospitalization)
  Sender: FDA-Public Use
  Company Number: None

PATIENT
  Age: 85 Year
  Sex: Female

DRUGS (16)
  1. ZOLPIDEM [Suspect]
     Active Substance: ZOLPIDEM TARTRATE
     Indication: Insomnia
     Dosage: 10 MG C/24 H
     Route: 048
     Dates: start: 20210812, end: 20210908
  2. LEVOMEPROMAZINE MALEATE [Suspect]
     Active Substance: LEVOMEPROMAZINE MALEATE
     Indication: Agitation
     Dosage: 25 MG C/12 H
     Route: 048
     Dates: start: 20210824, end: 20210906
  3. RILAST [Concomitant]
     Active Substance: BUDESONIDE\FORMOTEROL
     Indication: Dyspnoea
     Dosage: 2 DOSAGE FORM, Q12H
     Dates: start: 20180806
  4. OMEPRAZOL CINFA [Concomitant]
     Indication: Gastritis
     Dosage: 20 MG, A-DE
     Route: 048
     Dates: start: 20210429
  5. RIVOTRIL [Concomitant]
     Active Substance: CLONAZEPAM
     Indication: Anxiety
     Dosage: 0.5 MG CO
     Route: 048
     Dates: start: 20100528
  6. BISOPROLOL FUMARATE [Concomitant]
     Active Substance: BISOPROLOL FUMARATE
     Indication: Atrial fibrillation
     Dosage: 2.5 MG, DE
     Route: 048
     Dates: start: 20160811
  7. HALOPERIDOL [Concomitant]
     Active Substance: HALOPERIDOL
     Indication: Panic reaction
     Dosage: 1.0 MG CE
     Route: 048
     Dates: start: 20210812
  8. PROLIA [Concomitant]
     Active Substance: DENOSUMAB
     Indication: Spinal fracture
     Dosage: 60 MG
     Route: 058
     Dates: start: 20200905
  9. ESCITALOPRAM NORMON [Concomitant]
     Indication: Persistent depressive disorder
     Dosage: 20 MG, DE
     Route: 048
     Dates: start: 20210429
  10. FUROSEMIDE [Concomitant]
     Active Substance: FUROSEMIDE
     Indication: Cardiac failure
     Dosage: 40 MG DECOCE
     Route: 048
     Dates: start: 20201001
  11. FOLIC ACID [Concomitant]
     Active Substance: FOLIC ACID
     Indication: Anaemia
     Dosage: 5 MG, A-DE
     Route: 048
     Dates: start: 20210611
  12. SINTROM [Concomitant]
     Active Substance: ACENOCOUMAROL
     Indication: Coagulopathy
     Dosage: 2 MG, CE
     Route: 048
     Dates: start: 20160810
  13. FERPLEX [Concomitant]
     Indication: Anaemia
     Dosage: 800 MG, A-DECE
     Route: 048
     Dates: start: 20210611
  14. ALDACTONE [Concomitant]
     Active Substance: SPIRONOLACTONE
     Indication: Cardiac failure
     Dosage: 25 MG, DE
     Route: 048
     Dates: start: 20191206
  15. ATROVENT [Concomitant]
     Active Substance: IPRATROPIUM BROMIDE
     Indication: Bronchitis
     Dosage: 40 UG C/6 HORAS
     Route: 065
     Dates: start: 20191205
  16. ALLOPURINOL [Concomitant]
     Active Substance: ALLOPURINOL
     Indication: Product used for unknown indication
     Dosage: 100 MG, DE
     Route: 048
     Dates: start: 20200220

REACTIONS (1)
  - Hypersomnia [Recovered/Resolved]

NARRATIVE: CASE EVENT DATE: 20210901
